FAERS Safety Report 5522380-6 (Version None)
Quarter: 2007Q4

REPORT INFORMATION
  Report Type: 
  Country: None (occurrence: None)
  Receive Date: 20071120
  Receipt Date: 20071109
  Transmission Date: 20080405
  Serious: Yes (Other)
  Sender: FDA-Public Use
  Company Number: DE-GENENTECH-251447

PATIENT
  Age: 57 Year
  Sex: Female

DRUGS (6)
  1. AVASTIN [Suspect]
     Indication: COLON CANCER
     Dosage: 5 MG/KG, UNK
  2. XELODA [Suspect]
     Indication: COLON CANCER
  3. ERBITUX [Suspect]
     Indication: COLON CANCER
     Dosage: 400 MG/M2, SINGLE
     Route: 042
  4. FLUOROURACIL [Suspect]
     Indication: COLON CANCER
     Route: 042
  5. FOLINIC ACID [Suspect]
     Indication: COLON CANCER
     Route: 042
  6. IRINOTECAN HCL [Suspect]
     Indication: COLON CANCER
     Route: 042

REACTIONS (7)
  - ABDOMINAL PAIN [None]
  - ALOPECIA [None]
  - ASCITES [None]
  - FATIGUE [None]
  - JAUNDICE [None]
  - OEDEMA PERIPHERAL [None]
  - SKIN TOXICITY [None]
